FAERS Safety Report 18473529 (Version 1)
Quarter: 2020Q4

REPORT INFORMATION
  Report Type: Not Available
  Country: None (occurrence: None)
  Receive Date: 20201106
  Receipt Date: 20201106
  Transmission Date: 20210114
  Serious: No
  Sender: FDA-Public Use
  Company Number: US-AKORN-154714

PATIENT
  Sex: Male

DRUGS (1)
  1. BETIMOL [Suspect]
     Active Substance: TIMOLOL

REACTIONS (2)
  - Photophobia [None]
  - Eye pruritus [None]

NARRATIVE: CASE EVENT DATE: 20201011
